FAERS Safety Report 14922641 (Version 1)
Quarter: 2018Q2

REPORT INFORMATION
  Report Type: Spontaneous
  Country: US (occurrence: US)
  Receive Date: 20180503
  Receipt Date: 20180503
  Transmission Date: 20180711
  Serious: Yes (Hospitalization, Disabling, Other)
  Sender: FDA-Public Use
  Company Number: None

PATIENT
  Age: 30 Year
  Sex: Female

DRUGS (7)
  1. HARVONI [Suspect]
     Active Substance: LEDIPASVIR\SOFOSBUVIR
     Indication: HEPATITIS C
     Dosage: ?          QUANTITY:1 TABLET(S);?
     Route: 048
  2. TRAZODONE [Concomitant]
     Active Substance: TRAZODONE HYDROCHLORIDE
  3. SUBOXONE [Concomitant]
     Active Substance: BUPRENORPHINE HYDROCHLORIDE\NALOXONE HYDROCHLORIDE
  4. PROBIOTIC [Concomitant]
     Active Substance: PROBIOTICS NOS
  5. ENGOCALCIFEROL [Concomitant]
  6. LEXAPRO [Concomitant]
     Active Substance: ESCITALOPRAM OXALATE
  7. MVI [Concomitant]
     Active Substance: VITAMINS

REACTIONS (12)
  - Bacterial infection [None]
  - Arthralgia [None]
  - Insomnia [None]
  - Renal pain [None]
  - Neuropathy peripheral [None]
  - Myalgia [None]
  - Vision blurred [None]
  - Fatigue [None]
  - Fluid retention [None]
  - Skin ulcer [None]
  - Blepharospasm [None]
  - Pollakiuria [None]

NARRATIVE: CASE EVENT DATE: 20161207
